FAERS Safety Report 10275403 (Version 1)
Quarter: 2014Q2

REPORT INFORMATION
  Report Type: Spontaneous
  Country: US (occurrence: None)
  Receive Date: 20140630
  Receipt Date: 20140630
  Transmission Date: 20141212
  Serious: Yes (Death)
  Sender: FDA-Public Use
  Company Number: None

PATIENT
  Age: 71 Year
  Sex: Female
  Weight: 60 kg

DRUGS (1)
  1. PRADAXA 150 MG [Suspect]
     Indication: ATRIAL FIBRILLATION
     Route: 048

REACTIONS (5)
  - Mental status changes [None]
  - Blood pressure systolic increased [None]
  - Cerebral haemorrhage [None]
  - Subarachnoid haemorrhage [None]
  - Unresponsive to stimuli [None]
